FAERS Safety Report 24876789 (Version 1)
Quarter: 2025Q1

REPORT INFORMATION
  Report Type: Report from Study
  Country: US (occurrence: US)
  Receive Date: 20250123
  Receipt Date: 20250123
  Transmission Date: 20250408
  Serious: Yes (Hospitalization, Other)
  Sender: ABBVIE
  Company Number: US-ABBVIE-6082331

PATIENT
  Sex: Female

DRUGS (2)
  1. RINVOQ [Suspect]
     Active Substance: UPADACITINIB
     Indication: Exposure via body fluid
     Route: 050
  2. Pre-natal vitamin [Concomitant]
     Indication: Vitamin supplementation

REACTIONS (6)
  - Failed induction of labour [Recovered/Resolved]
  - Maternal exposure during pregnancy [Unknown]
  - Paternal exposure during pregnancy [Unknown]
  - Live birth [Unknown]
  - Umbilical cord around neck [Recovered/Resolved]
  - Foetal malposition [Recovered/Resolved]

NARRATIVE: CASE EVENT DATE: 20240101
